FAERS Safety Report 7399183-3 (Version None)
Quarter: 2011Q2

REPORT INFORMATION
  Report Type: 
  Country: None (occurrence: None)
  Receive Date: 20110407
  Receipt Date: 20110331
  Transmission Date: 20111010
  Serious: Yes (Hospitalization, Other)
  Sender: FDA-Public Use
  Company Number: US-PFIZER INC-US-WYE-H17559210

PATIENT
  Sex: Female
  Weight: 61.7 kg

DRUGS (13)
  1. BACTRIM [Suspect]
     Indication: STAPHYLOCOCCAL INFECTION
     Dosage: UNK
     Route: 065
     Dates: start: 20090101, end: 20100101
  2. DURAGESIC [Concomitant]
     Route: 062
  3. ZOSYN [Suspect]
     Indication: PRODUCT USED FOR UNKNOWN INDICATION
     Route: 065
  4. VANCOMYCIN [Suspect]
     Indication: STAPHYLOCOCCAL INFECTION
     Route: 065
  5. SEROQUEL [Concomitant]
     Route: 048
  6. ZYVOX [Suspect]
     Dosage: UNK
     Dates: start: 20100801, end: 20100101
  7. KLONOPIN [Concomitant]
     Route: 048
  8. SYMBICORT [Concomitant]
     Route: 065
  9. WARFARIN [Concomitant]
     Route: 065
  10. SPIRIVA [Concomitant]
     Route: 065
  11. LORTAB [Concomitant]
     Route: 048
  12. COREG [Concomitant]
     Route: 048
  13. PROZAC [Concomitant]
     Route: 048

REACTIONS (7)
  - BEDRIDDEN [None]
  - ABSCESS [None]
  - WEIGHT DECREASED [None]
  - HYPOAESTHESIA [None]
  - ABASIA [None]
  - DIARRHOEA [None]
  - RECTAL ULCER [None]
